FAERS Safety Report 26111518 (Version 1)
Quarter: 2025Q4

REPORT INFORMATION
  Report Type: Other
  Country: GB (occurrence: GB)
  Receive Date: 20251202
  Receipt Date: 20251202
  Transmission Date: 20260118
  Serious: Yes (Other)
  Sender: MACLEODS
  Company Number: None

PATIENT

DRUGS (6)
  1. RIVAROXABAN [Suspect]
     Active Substance: RIVAROXABAN
     Indication: Product used for unknown indication
     Dosage: ONE TO BE TAKEN DAILY
     Route: 065
  2. DOMPERIDONE [Concomitant]
     Active Substance: DOMPERIDONE
     Indication: Product used for unknown indication
     Dosage: TAKE ONE TABLET UP TO THREE TIMES A DAY
     Route: 065
     Dates: start: 20250717
  3. MORPHINE [Concomitant]
     Active Substance: MORPHINE
     Indication: Product used for unknown indication
     Dosage: TAKE ONE CAPSULE EVERY 12 HOURS
     Route: 065
     Dates: start: 20250722
  4. Oramorph (Glenwood GmbH) [Concomitant]
     Indication: Product used for unknown indication
     Dosage: 2.5 ML HOURLY PRN
     Route: 065
     Dates: start: 20250722
  5. SENNA [Concomitant]
     Active Substance: SENNOSIDES
     Indication: Product used for unknown indication
     Dosage: TWO TO BE TAKEN AT NIGHT
     Route: 065
     Dates: start: 20250722
  6. POLYETHYLENE GLYCOLS [Concomitant]
     Active Substance: POLYETHYLENE GLYCOLS
     Indication: Product used for unknown indication
     Dosage: TWO SACHET TO BE TAKEN EACH DAY
     Route: 048
     Dates: start: 20250722

REACTIONS (1)
  - Rectal haemorrhage [Recovering/Resolving]

NARRATIVE: CASE EVENT DATE: 20241019
